FAERS Safety Report 21598528 (Version 1)
Quarter: 2022Q4

REPORT INFORMATION
  Report Type: Spontaneous
  Country: JP (occurrence: None)
  Receive Date: 20221115
  Receipt Date: 20221115
  Transmission Date: 20230112
  Serious: Yes (Disabling)
  Sender: FDA-Public Use
  Company Number: 2022A372411

PATIENT
  Age: 22 Year
  Sex: Female

DRUGS (1)
  1. SAPHNELO [Suspect]
     Active Substance: ANIFROLUMAB-FNIA
     Indication: Systemic lupus erythematosus
     Dosage: 300 MG EVERY 4 WEEKS, UNKNOWN
     Route: 041

REACTIONS (3)
  - Arthralgia [Unknown]
  - Rash [Unknown]
  - Mouth ulceration [Unknown]
